FAERS Safety Report 4833579-6 (Version None)
Quarter: 2005Q4

REPORT INFORMATION
  Report Type: 
  Country: None (occurrence: None)
  Receive Date: 20051121
  Receipt Date: 20051114
  Transmission Date: 20060501
  Serious: Yes (Death, Other)
  Sender: FDA-Public Use
  Company Number: AU-MERCK-0511AUS00226

PATIENT
  Age: 90 Year
  Sex: Male

DRUGS (3)
  1. FOSAMAX [Suspect]
     Indication: OSTEOPOROSIS
     Route: 048
     Dates: start: 19990101, end: 20000101
  2. FOSAMAX [Suspect]
     Route: 048
     Dates: start: 20000101, end: 20040812
  3. ASPIRIN [Concomitant]
     Route: 065

REACTIONS (4)
  - DEATH [None]
  - DYSPNOEA [None]
  - EYE HAEMORRHAGE [None]
  - PRESCRIBED OVERDOSE [None]
